FAERS Safety Report 17450362 (Version 1)
Quarter: 2020Q1

REPORT INFORMATION
  Report Type: Spontaneous
  Country: US (occurrence: US)
  Receive Date: 20200210
  Receipt Date: 20200210
  Transmission Date: 20200409
  Serious: No
  Sender: FDA-Public Use
  Company Number: None

PATIENT
  Age: 55 Year
  Sex: Female

DRUGS (1)
  1. LORBRENA [Suspect]
     Active Substance: LORLATINIB
     Indication: BRONCHIAL CARCINOMA
     Route: 048
     Dates: start: 20140504

REACTIONS (2)
  - Memory impairment [None]
  - Confusional state [None]

NARRATIVE: CASE EVENT DATE: 202002
